FAERS Safety Report 23462305 (Version 2)
Quarter: 2024Q1

REPORT INFORMATION
  Report Type: Spontaneous
  Country: US (occurrence: US)
  Receive Date: 20240131
  Receipt Date: 20240202
  Transmission Date: 20240410
  Serious: Yes (Death, Other)
  Sender: FDA-Public Use
  Company Number: US-AMGEN-USASP2024016917

PATIENT
  Age: 49 Year
  Sex: Male

DRUGS (16)
  1. FILGRASTIM [Suspect]
     Active Substance: FILGRASTIM
     Indication: Prophylaxis
     Dosage: UNK
     Route: 065
  2. DAUNORUBICIN [Suspect]
     Active Substance: DAUNORUBICIN
     Indication: Acute myeloid leukaemia
     Route: 065
  3. FLUDARABINE [Suspect]
     Active Substance: FLUDARABINE PHOSPHATE
     Indication: Acute myeloid leukaemia
     Route: 065
  4. CYTARABINE [Suspect]
     Active Substance: CYTARABINE
     Indication: Acute myeloid leukaemia
     Route: 065
  5. MIDOSTAURIN [Suspect]
     Active Substance: MIDOSTAURIN
     Indication: Acute myeloid leukaemia
     Route: 065
  6. IDARUBICIN [Suspect]
     Active Substance: IDARUBICIN
     Indication: Acute myeloid leukaemia
     Route: 065
  7. DOLUTEGRAVIR [Concomitant]
     Active Substance: DOLUTEGRAVIR
     Dosage: UNK
  8. EMTRICITABINE [Concomitant]
     Active Substance: EMTRICITABINE
     Dosage: UNK
  9. TENOFOVIR ALAFENAMIDE [Concomitant]
     Active Substance: TENOFOVIR ALAFENAMIDE
     Dosage: UNK
  10. RITUXIMAB [Concomitant]
     Active Substance: RITUXIMAB
  11. CYCLOPHOSPHAMIDE [Concomitant]
     Active Substance: CYCLOPHOSPHAMIDE
  12. VINCRISTINE [Concomitant]
     Active Substance: VINCRISTINE
  13. PREDNISONE [Concomitant]
     Active Substance: PREDNISONE
  14. IFOSFAMIDE [Concomitant]
     Active Substance: IFOSFAMIDE
  15. ETOPOSIDE [Concomitant]
     Active Substance: ETOPOSIDE
  16. CARBOPLATIN [Concomitant]
     Active Substance: CARBOPLATIN

REACTIONS (2)
  - COVID-19 pneumonia [Fatal]
  - Acute myeloid leukaemia refractory [Unknown]

NARRATIVE: CASE EVENT DATE: 20200101
